FAERS Safety Report 5270687-2 (Version None)
Quarter: 2007Q1

REPORT INFORMATION
  Report Type: 
  Country: None (occurrence: None)
  Receive Date: 20061214
  Receipt Date: 20051202
  Transmission Date: 20070707
  Serious: Yes (Hospitalization)
  Sender: FDA-Public Use
  Company Number: 2005169478

PATIENT
  Age: 59 Year
  Sex: Female
  Weight: 65.318 kg

DRUGS (2)
  1. BEXTRA [Suspect]
     Indication: EXOSTOSIS
     Dosage: 10 MG ORAL
     Route: 048
     Dates: start: 20030501, end: 20030515
  2. BEXTRA [Suspect]
     Indication: PAIN IN EXTREMITY
     Dosage: 10 MG ORAL
     Route: 048
     Dates: start: 20030501, end: 20030515

REACTIONS (4)
  - DYSPNOEA [None]
  - PRURITUS [None]
  - RASH MACULO-PAPULAR [None]
  - TACHYCARDIA [None]
